FAERS Safety Report 13184519 (Version 1)
Quarter: 2017Q1

REPORT INFORMATION
  Report Type: Spontaneous
  Country: FR (occurrence: FR)
  Receive Date: 20170203
  Receipt Date: 20170203
  Transmission Date: 20170428
  Serious: Yes (Hospitalization)
  Sender: FDA-Public Use
  Company Number: FR-MERCK KGAA-1062705

PATIENT
  Age: 82 Year
  Sex: Male

DRUGS (6)
  1. NOVOTHYROX [Suspect]
     Active Substance: LEVOTHYROXINE SODIUM
     Indication: PRODUCT USED FOR UNKNOWN INDICATION
  2. CEFOXITIN [Suspect]
     Active Substance: CEFOXITIN SODIUM
     Route: 042
     Dates: start: 20161229, end: 20170101
  3. HALDOL [Suspect]
     Active Substance: HALOPERIDOL
     Route: 048
     Dates: start: 20161223, end: 20170102
  4. HALDOL [Suspect]
     Active Substance: HALOPERIDOL
     Dates: start: 20170103
  5. PARACETAMOL [Suspect]
     Active Substance: ACETAMINOPHEN
     Dates: start: 20161222, end: 20161229
  6. CALCIPARINE [Suspect]
     Active Substance: HEPARIN CALCIUM

REACTIONS (3)
  - Erythema [Recovering/Resolving]
  - Toxic skin eruption [Recovering/Resolving]
  - Rash [Recovering/Resolving]

NARRATIVE: CASE EVENT DATE: 20161229
